FAERS Safety Report 9352783 (Version 1)
Quarter: 2013Q2

REPORT INFORMATION
  Report Type: Spontaneous
  Country: US (occurrence: None)
  Receive Date: 20130614
  Receipt Date: 20130614
  Transmission Date: 20140414
  Serious: Yes (Other)
  Sender: FDA-Public Use
  Company Number: None

PATIENT
  Age: 66 Year
  Sex: Male

DRUGS (4)
  1. VALCYTE [Suspect]
     Dosage: IV?A COUPLE OF DAYS
     Route: 042
  2. VALCYTE [Suspect]
     Dosage: 1-2  TWICE A DAY  PO
     Route: 048
     Dates: start: 20120620, end: 20130515
  3. TOPROL [Concomitant]
  4. RYTHMOL [Concomitant]

REACTIONS (4)
  - Peripheral sensorimotor neuropathy [None]
  - Full blood count abnormal [None]
  - White blood cell count decreased [None]
  - CD4 lymphocytes decreased [None]
